FAERS Safety Report 6626646-8 (Version None)
Quarter: 2010Q1

REPORT INFORMATION
  Report Type: 
  Country: None (occurrence: None)
  Receive Date: 20100305
  Receipt Date: 20100219
  Transmission Date: 20100710
  Serious: Yes (Death, Life-Threatening, Hospitalization)
  Sender: FDA-Public Use
  Company Number: 1000011493

PATIENT
  Age: 68 Year
  Sex: Female

DRUGS (3)
  1. ESCITALOPRAM OXALATE [Suspect]
     Dosage: 15-20 MG DAILY
     Dates: start: 20080925, end: 20081220
  2. RISPERDAL [Suspect]
     Dosage: 6 MG (6 MG, 1 IN 1 D)
     Dates: start: 20081009, end: 20081220
  3. AKINETON [Suspect]
     Dosage: 4 MG (4 MG, 1 IN 1 D)
     Dates: start: 20081204, end: 20081220

REACTIONS (2)
  - COMPLETED SUICIDE [None]
  - FALL [None]
